FAERS Safety Report 8830590 (Version 2)
Quarter: 2012Q4

REPORT INFORMATION
  Report Type: Spontaneous
  Country: US (occurrence: None)
  Receive Date: 20121005
  Receipt Date: 20121130
  Transmission Date: 20130627
  Serious: Yes (Life-Threatening, Hospitalization, Other)
  Sender: FDA-Public Use
  Company Number: COL_12394_2012

PATIENT
  Age: 89 Year
  Sex: Male

DRUGS (7)
  1. COLGATE TOTAL ADVANCE WHITENING [Suspect]
     Indication: DENTAL CARIES
     Dosage: covered head of toothbrush/once/oral
     Route: 048
     Dates: start: 20120918, end: 20120918
  2. CARDURA [Concomitant]
  3. PROSCAR [Concomitant]
  4. CADUET [Concomitant]
  5. ACCURETIC [Concomitant]
  6. GLUCOTROL [Concomitant]
  7. METFORMIN [Concomitant]

REACTIONS (6)
  - Pharyngeal oedema [None]
  - Swelling face [None]
  - Oedema mouth [None]
  - Lip swelling [None]
  - Dysphonia [None]
  - Hypersensitivity [None]
